FAERS Safety Report 20523849 (Version 1)
Quarter: 2022Q1

REPORT INFORMATION
  Report Type: Spontaneous
  Country: US (occurrence: US)
  Receive Date: 20220228
  Receipt Date: 20220228
  Transmission Date: 20220423
  Serious: No
  Sender: FDA-Public Use
  Company Number: US-ENDO PHARMACEUTICALS INC-2021-010812

PATIENT
  Sex: Female

DRUGS (4)
  1. NASCOBAL [Suspect]
     Active Substance: CYANOCOBALAMIN
     Indication: Vitamin B12 deficiency
     Dosage: UNK UNKNOWN, WEEKLY
     Route: 065
  2. NASCOBAL [Suspect]
     Active Substance: CYANOCOBALAMIN
     Indication: Vitamin B12 deficiency
     Dosage: UNK UNKNOWN, WEEKLY
     Route: 065
  3. NASCOBAL [Suspect]
     Active Substance: CYANOCOBALAMIN
     Dosage: UNK UNKNOWN, UNKNOWN; EVERY TWO WEEKS
     Route: 065
  4. NASCOBAL [Suspect]
     Active Substance: CYANOCOBALAMIN
     Dosage: UNK UNKNOWN, UNKNOWN; EVERY TWO WEEKS
     Route: 065

REACTIONS (2)
  - Vitamin B12 increased [Unknown]
  - Inappropriate schedule of product administration [Unknown]
